FAERS Safety Report 6993979-5 (Version None)
Quarter: 2010Q3

REPORT INFORMATION
  Report Type: 
  Country: None (occurrence: None)
  Receive Date: 20100917
  Receipt Date: 20100623
  Transmission Date: 20110219
  Serious: No
  Sender: FDA-Public Use
  Company Number: US-ASTRAZENECA-2010SE29576

PATIENT
  Age: 52 Year
  Sex: Male
  Weight: 81.6 kg

DRUGS (16)
  1. SEROQUEL [Suspect]
     Indication: DEPRESSION
     Route: 048
     Dates: start: 20090101
  2. FOLIC ACID [Concomitant]
     Route: 065
  3. VITAMIN B-12 [Concomitant]
     Route: 065
  4. XANAX [Concomitant]
     Route: 065
  5. LISINOPRIL [Concomitant]
     Route: 065
  6. METOPROLOL [Concomitant]
     Route: 065
  7. IMDUR [Concomitant]
     Route: 065
  8. CRESTOR [Concomitant]
     Route: 048
  9. PRILOSEC [Concomitant]
     Route: 065
  10. CARAFATE [Concomitant]
     Route: 065
  11. CELEXA [Concomitant]
     Route: 065
  12. NORVASC [Concomitant]
     Route: 065
  13. FISH OIL [Concomitant]
     Route: 065
  14. PLAVIX [Concomitant]
     Route: 065
  15. BENADRYL [Concomitant]
     Route: 065
  16. CLARITIN [Concomitant]
     Route: 065

REACTIONS (5)
  - BLOOD PRESSURE FLUCTUATION [None]
  - CATHETERISATION CARDIAC [None]
  - CHEST DISCOMFORT [None]
  - SOMNOLENCE [None]
  - WRONG TECHNIQUE IN DRUG USAGE PROCESS [None]
